FAERS Safety Report 5213216-1 (Version None)
Quarter: 2007Q1

REPORT INFORMATION
  Report Type: 
  Country: None (occurrence: None)
  Receive Date: 20070119
  Receipt Date: 20070111
  Transmission Date: 20070707
  Serious: Yes (Other)
  Sender: FDA-Public Use
  Company Number: 2007UW00601

PATIENT
  Age: 69 Year
  Sex: Female

DRUGS (11)
  1. SEROQUEL [Suspect]
     Indication: INSOMNIA
     Route: 048
  2. DIOVAN [Concomitant]
  3. LOTREL [Concomitant]
  4. CLONAPIN [Concomitant]
  5. ESTROGENS SOL/INJ [Concomitant]
  6. PLAVIX [Concomitant]
  7. FOLTZ VITAMINS FOR HEART [Concomitant]
  8. TRAZODONE HCL [Concomitant]
  9. FLEXERIL [Concomitant]
  10. AMBIEN [Concomitant]
  11. LASIX [Concomitant]

REACTIONS (5)
  - ASTHENIA [None]
  - BONE PAIN [None]
  - GASTROINTESTINAL PAIN [None]
  - MOBILITY DECREASED [None]
  - RENAL PAIN [None]
